FAERS Safety Report 20095000 (Version 1)
Quarter: 2021Q4

REPORT INFORMATION
  Report Type: Spontaneous
  Country: CA (occurrence: CA)
  Receive Date: 20211122
  Receipt Date: 20211122
  Transmission Date: 20220303
  Serious: Yes (Hospitalization, Other)
  Sender: FDA-Public Use
  Company Number: CA-APOTEX-2017AP010091

PATIENT
  Sex: Female

DRUGS (48)
  1. TRAMADOL HYDROCHLORIDE [Suspect]
     Active Substance: TRAMADOL HYDROCHLORIDE
     Indication: Product used for unknown indication
     Dosage: UNK
     Route: 065
  2. ASPIRIN [Suspect]
     Active Substance: ASPIRIN
     Indication: Rheumatoid arthritis
     Dosage: UNK
     Route: 065
  3. ASPIRIN [Suspect]
     Active Substance: ASPIRIN
     Indication: Pain
  4. ASPIRIN [Suspect]
     Active Substance: ASPIRIN
     Indication: Joint stiffness
  5. ASPIRIN [Suspect]
     Active Substance: ASPIRIN
     Indication: Mobility decreased
  6. DICLOFENAC SODIUM [Suspect]
     Active Substance: DICLOFENAC SODIUM
     Indication: Rheumatoid arthritis
     Dosage: UNK
     Route: 065
  7. DICLOFENAC SODIUM [Suspect]
     Active Substance: DICLOFENAC SODIUM
     Indication: Pain
  8. DICLOFENAC SODIUM [Suspect]
     Active Substance: DICLOFENAC SODIUM
     Indication: Joint stiffness
  9. DICLOFENAC SODIUM [Suspect]
     Active Substance: DICLOFENAC SODIUM
     Indication: Mobility decreased
  10. METHOTREXATE [Suspect]
     Active Substance: METHOTREXATE
     Indication: Rheumatoid arthritis
     Dosage: UNK
     Route: 065
  11. METHOTREXATE [Suspect]
     Active Substance: METHOTREXATE
     Indication: Pain
  12. METHOTREXATE [Suspect]
     Active Substance: METHOTREXATE
     Indication: Joint stiffness
  13. METHOTREXATE [Suspect]
     Active Substance: METHOTREXATE
     Indication: Mobility decreased
  14. PLAQUENIL [Suspect]
     Active Substance: HYDROXYCHLOROQUINE SULFATE
     Indication: Rheumatoid arthritis
     Dosage: UNK
     Route: 065
  15. PLAQUENIL [Suspect]
     Active Substance: HYDROXYCHLOROQUINE SULFATE
     Indication: Pain
  16. PLAQUENIL [Suspect]
     Active Substance: HYDROXYCHLOROQUINE SULFATE
     Indication: Joint stiffness
  17. NAPROSYN [Suspect]
     Active Substance: NAPROXEN
     Indication: Mobility decreased
     Dosage: UNK
     Route: 065
  18. NAPROSYN [Suspect]
     Active Substance: NAPROXEN
     Indication: Pain
  19. NAPROSYN [Suspect]
     Active Substance: NAPROXEN
     Indication: Rheumatoid arthritis
  20. NAPROSYN [Suspect]
     Active Substance: NAPROXEN
     Indication: Joint stiffness
  21. MOTRIN [Suspect]
     Active Substance: IBUPROFEN
     Indication: Rheumatoid arthritis
     Dosage: UNK
     Route: 065
  22. MOTRIN [Suspect]
     Active Substance: IBUPROFEN
     Indication: Mobility decreased
  23. MOTRIN [Suspect]
     Active Substance: IBUPROFEN
     Indication: Pain
  24. MOTRIN [Suspect]
     Active Substance: IBUPROFEN
     Indication: Joint stiffness
  25. HUMIRA [Suspect]
     Active Substance: ADALIMUMAB
     Indication: Rheumatoid arthritis
     Dosage: UNK
     Route: 065
  26. HUMIRA [Suspect]
     Active Substance: ADALIMUMAB
     Indication: Pain
  27. HUMIRA [Suspect]
     Active Substance: ADALIMUMAB
     Indication: Joint stiffness
  28. HUMIRA [Suspect]
     Active Substance: ADALIMUMAB
     Indication: Mobility decreased
  29. GOLD [Suspect]
     Active Substance: GOLD
     Indication: Rheumatoid arthritis
     Dosage: UNK
     Route: 065
  30. GOLD [Suspect]
     Active Substance: GOLD
     Indication: Pain
  31. GOLD [Suspect]
     Active Substance: GOLD
     Indication: Joint stiffness
  32. GOLD [Suspect]
     Active Substance: GOLD
     Indication: Mobility decreased
  33. ENBREL [Suspect]
     Active Substance: ETANERCEPT
     Indication: Rheumatoid arthritis
     Dosage: UNK
     Route: 065
  34. ENBREL [Suspect]
     Active Substance: ETANERCEPT
     Indication: Pain
  35. ENBREL [Suspect]
     Active Substance: ETANERCEPT
     Indication: Joint stiffness
  36. ENBREL [Suspect]
     Active Substance: ETANERCEPT
     Indication: Mobility decreased
  37. ARAVA [Suspect]
     Active Substance: LEFLUNOMIDE
     Indication: Rheumatoid arthritis
     Dosage: UNK
     Route: 065
  38. ARAVA [Suspect]
     Active Substance: LEFLUNOMIDE
     Indication: Pain
  39. ARAVA [Suspect]
     Active Substance: LEFLUNOMIDE
     Indication: Joint stiffness
  40. ARAVA [Suspect]
     Active Substance: LEFLUNOMIDE
     Indication: Mobility decreased
  41. VOLTAREN [Suspect]
     Active Substance: DICLOFENAC SODIUM
     Indication: Rheumatoid arthritis
     Dosage: UNK
     Route: 065
  42. VOLTAREN [Suspect]
     Active Substance: DICLOFENAC SODIUM
     Indication: Pain
  43. VOLTAREN [Suspect]
     Active Substance: DICLOFENAC SODIUM
     Indication: Joint stiffness
  44. VOLTAREN [Suspect]
     Active Substance: DICLOFENAC SODIUM
     Indication: Mobility decreased
  45. ASPIRIN\CLOPIDOGREL [Suspect]
     Active Substance: ASPIRIN\CLOPIDOGREL
     Indication: Rheumatoid arthritis
     Dosage: UNK
     Route: 065
  46. ASPIRIN\CLOPIDOGREL [Suspect]
     Active Substance: ASPIRIN\CLOPIDOGREL
     Indication: Pain
  47. ASPIRIN\CLOPIDOGREL [Suspect]
     Active Substance: ASPIRIN\CLOPIDOGREL
     Indication: Mobility decreased
  48. ASPIRIN\CLOPIDOGREL [Suspect]
     Active Substance: ASPIRIN\CLOPIDOGREL
     Indication: Joint stiffness

REACTIONS (13)
  - Ear infection [Unknown]
  - Eating disorder [Unknown]
  - Off label use [Unknown]
  - Pharyngitis [Unknown]
  - Weight decreased [Unknown]
  - Deafness [Unknown]
  - Decreased appetite [Unknown]
  - Abdominal discomfort [Unknown]
  - Dizziness [Unknown]
  - Headache [Unknown]
  - Nausea [Unknown]
  - Vomiting [Unknown]
  - Abdominal pain upper [Unknown]
